FAERS Safety Report 16970268 (Version 6)
Quarter: 2023Q2

REPORT INFORMATION
  Report Type: Report from Study
  Country: US (occurrence: US)
  Receive Date: 20191029
  Receipt Date: 20230530
  Transmission Date: 20230722
  Serious: Yes (Hospitalization)
  Sender: FDA-Public Use
  Company Number: US-PFIZER INC-2019457374

PATIENT
  Age: 12 Year
  Sex: Female
  Weight: 51.7 kg

DRUGS (7)
  1. VINCRISTINE SULFATE [Suspect]
     Active Substance: VINCRISTINE SULFATE
     Indication: B-cell type acute leukaemia
     Dosage: 2 MG, CYCLIC (DAYS 15, 22, 43, 50)
     Route: 042
     Dates: start: 20190903, end: 20190910
  2. METHOTREXATE SODIUM [Suspect]
     Active Substance: METHOTREXATE SODIUM
     Indication: B-cell type acute leukaemia
     Dosage: 15 MG, CYCLIC (DAYS 1, 8, 15, 22)
     Route: 037
     Dates: start: 20190820, end: 20190910
  3. RUXOLITINIB [Suspect]
     Active Substance: RUXOLITINIB
     Indication: B-cell type acute leukaemia
     Dosage: 70 MG, 2X/DAY (TABLET)
     Route: 048
     Dates: start: 20190820
  4. PEGASPARGASE [Suspect]
     Active Substance: PEGASPARGASE
     Indication: B-cell type acute leukaemia
     Dosage: 3600 IU, CYCLIC (DAYS 15 AND 43) (INTRAVENOUS, IU/M2)
     Route: 030
     Dates: start: 20190903
  5. MERCAPTOPURINE [Suspect]
     Active Substance: MERCAPTOPURINE
     Indication: B-cell type acute leukaemia
     Dosage: 85 MG, CYCLIC (DAYS 1-14, 29-42) (TABLET)
     Route: 048
     Dates: start: 20190820
  6. CYCLOPHOSPHAMIDE [Suspect]
     Active Substance: CYCLOPHOSPHAMIDE
     Indication: B-cell type acute leukaemia
     Dosage: 1440 MG, CYCLIC (DAY 1 AND 29)
     Route: 042
     Dates: start: 20190820
  7. ZOFRAN [Concomitant]
     Active Substance: ONDANSETRON HYDROCHLORIDE
     Dosage: UNK
     Dates: start: 20190712

REACTIONS (3)
  - Febrile neutropenia [Recovered/Resolved]
  - Seizure [Recovered/Resolved]
  - Drug hypersensitivity [Recovered/Resolved]

NARRATIVE: CASE EVENT DATE: 20190906
